FAERS Safety Report 15785654 (Version 1)
Quarter: 2019Q1

REPORT INFORMATION
  Report Type: Spontaneous
  Country: US (occurrence: US)
  Receive Date: 20190102
  Receipt Date: 20190102
  Transmission Date: 20190417
  Serious: Yes (Other)
  Sender: FDA-Public Use
  Company Number: None

PATIENT
  Sex: Male

DRUGS (3)
  1. LITHIUM. [Concomitant]
     Active Substance: LITHIUM
  2. CHANTIX [Suspect]
     Active Substance: VARENICLINE TARTRATE
     Indication: SMOKING CESSATION THERAPY
  3. BUPROPION. [Concomitant]
     Active Substance: BUPROPION

REACTIONS (3)
  - Anger [None]
  - Depression [None]
  - Aggression [None]

NARRATIVE: CASE EVENT DATE: 20181224
